FAERS Safety Report 4295371-3 (Version None)
Quarter: 2004Q1

REPORT INFORMATION
  Report Type: 
  Country: None (occurrence: None)
  Receive Date: 20040216
  Receipt Date: 20030702
  Transmission Date: 20041129
  Serious: No
  Sender: FDA-Public Use
  Company Number: US-GLAXOSMITHKLINE-A0414914A

PATIENT
  Age: 27 Year
  Sex: Female
  Weight: 63.6 kg

DRUGS (3)
  1. LAMICTAL [Suspect]
     Indication: BIPOLAR II DISORDER
     Dosage: 100MG UNKNOWN
     Route: 048
     Dates: start: 20030429
  2. EFFEXOR [Concomitant]
     Indication: DEPRESSION
     Dosage: 150MG TWICE PER DAY
     Route: 048
  3. SYNTHROID [Concomitant]
     Dosage: 50MG PER DAY
     Route: 048

REACTIONS (1)
  - MASTITIS [None]
